FAERS Safety Report 5389951-1 (Version None)
Quarter: 2007Q3

REPORT INFORMATION
  Report Type: 
  Country: None (occurrence: None)
  Receive Date: 20070718
  Receipt Date: 20070707
  Transmission Date: 20080115
  Serious: Yes (Other)
  Sender: FDA-Public Use
  Company Number: DZ-NOVOPROD-264829

PATIENT
  Age: 73 Year
  Sex: Female
  Weight: 77 kg

DRUGS (6)
  1. NOVOLOG MIX 70/30 [Suspect]
     Indication: INSULIN-REQUIRING TYPE II DIABETES MELLITUS
     Dosage: 10 IU, QD
     Route: 058
     Dates: start: 20070608, end: 20070608
  2. INSUMAN KOMB T25 [Concomitant]
     Indication: INSULIN-REQUIRING TYPE II DIABETES MELLITUS
     Dosage: 50 IU, QD
  3. IRBESARTAN [Concomitant]
     Dosage: 300 MG, QD
     Route: 048
     Dates: start: 20040101
  4. LASILIX                            /00032601/ [Concomitant]
     Dosage: 40 MG, QD
     Route: 048
     Dates: start: 20040101
  5. ASPEGIC                            /00002701/ [Concomitant]
     Dosage: 100 UNK, QD
     Route: 048
     Dates: start: 20040101
  6. VENTOLINE                          /00139501/ [Concomitant]
     Dosage: IN CASE OF CRISIS
     Route: 055
     Dates: start: 19770101

REACTIONS (6)
  - DIARRHOEA [None]
  - DIZZINESS [None]
  - HYPERHIDROSIS [None]
  - MALAISE [None]
  - SYNCOPE [None]
  - VOMITING PROJECTILE [None]
